FAERS Safety Report 11777532 (Version 3)
Quarter: 2016Q3

REPORT INFORMATION
  Report Type: Spontaneous
  Country: US (occurrence: US)
  Receive Date: 20151125
  Receipt Date: 20160711
  Transmission Date: 20161109
  Serious: Yes (Other)
  Sender: FDA-Public Use
  Company Number: US-SA-2015SA188319

PATIENT
  Age: 70 Year
  Sex: Female

DRUGS (23)
  1. SIMVASTATIN. [Concomitant]
     Active Substance: SIMVASTATIN
     Indication: BLOOD CHOLESTEROL INCREASED
     Dates: start: 2013
  2. NEVANAC [Concomitant]
     Active Substance: NEPAFENAC
     Indication: EYE INFLAMMATION
     Dosage: 1 DROP IN EACH EYE A DAY
     Dates: start: 2016
  3. FLUTICASONE [Concomitant]
     Active Substance: FLUTICASONE\FLUTICASONE PROPIONATE
     Dosage: ONE SPRAY IN EACH NOSTRIL.?FORM: NASAL SPRAY
  4. ALBUTEROL SULFATE. [Concomitant]
     Active Substance: ALBUTEROL SULFATE
     Indication: DYSPNOEA
  5. NOVOLOG [Concomitant]
     Active Substance: INSULIN ASPART
     Dosage: TAKING BEFORE A MEAL AFTER DOING A ^READING^.
  6. BENADRYL [Concomitant]
     Active Substance: DIPHENHYDRAMINE HYDROCHLORIDE
  7. METFORMIN [Concomitant]
     Active Substance: METFORMIN HYDROCHLORIDE
  8. OMEPRAZOLE. [Concomitant]
     Active Substance: OMEPRAZOLE
     Indication: GASTROOESOPHAGEAL REFLUX DISEASE
     Dates: start: 2014
  9. LANTUS SOLOSTAR [Suspect]
     Active Substance: INSULIN GLARGINE
     Indication: TYPE 2 DIABETES MELLITUS
     Dosage: DOSE:60 UNIT(S)
     Route: 065
     Dates: start: 201408
  10. SOLOSTAR [Concomitant]
     Active Substance: DEVICE
     Indication: TYPE 2 DIABETES MELLITUS
     Dates: start: 201306
  11. LANTUS [Suspect]
     Active Substance: INSULIN GLARGINE
     Indication: TYPE 2 DIABETES MELLITUS
     Dosage: DOSE:40 UNIT(S)
     Route: 065
  12. LANTUS SOLOSTAR [Suspect]
     Active Substance: INSULIN GLARGINE
     Indication: TYPE 2 DIABETES MELLITUS
     Route: 065
     Dates: end: 201604
  13. SOLOSTAR [Concomitant]
     Active Substance: DEVICE
     Indication: TYPE 2 DIABETES MELLITUS
     Dates: end: 201604
  14. SOLOSTAR [Concomitant]
     Active Substance: DEVICE
     Indication: TYPE 2 DIABETES MELLITUS
     Dates: start: 201408
  15. MAGNESIUM [Concomitant]
     Active Substance: MAGNESIUM
     Indication: ELECTROLYTE IMBALANCE
  16. POTASSIUM [Concomitant]
     Active Substance: POTASSIUM
     Indication: ELECTROLYTE IMBALANCE
  17. NOVOLOG [Concomitant]
     Active Substance: INSULIN ASPART
  18. FLEXPEN [Concomitant]
     Active Substance: UNSPECIFIED INGREDIENT
  19. NASONEX [Concomitant]
     Active Substance: MOMETASONE FUROATE
  20. VENTOLIN [Concomitant]
     Active Substance: ALBUTEROL SULFATE
     Indication: ASTHMA
     Dosage: HAND HELD AEROLIZER?3 SPRAYS
  21. LANTUS [Suspect]
     Active Substance: INSULIN GLARGINE
     Indication: TYPE 2 DIABETES MELLITUS
     Dosage: DOSE:60 UNIT(S)
     Route: 065
     Dates: start: 201306
  22. APIDRA SOLOSTAR [Suspect]
     Active Substance: INSULIN GLULISINE
     Indication: TYPE 2 DIABETES MELLITUS
     Dosage: DOSE:40 UNIT(S)
     Route: 065
     Dates: start: 201306
  23. LOSARTAN. [Concomitant]
     Active Substance: LOSARTAN
     Indication: HYPERTENSION
     Dates: start: 2013

REACTIONS (15)
  - Off label use [Unknown]
  - Anaemia [Unknown]
  - Visual impairment [Not Recovered/Not Resolved]
  - Colorectal cancer [Unknown]
  - Feeling cold [Unknown]
  - Pain of skin [Not Recovered/Not Resolved]
  - Tremor [Unknown]
  - Hypoglycaemia [Unknown]
  - Hyperhidrosis [Unknown]
  - Stomal hernia [Unknown]
  - Haemoglobin decreased [Unknown]
  - Decreased appetite [Unknown]
  - Injection site induration [Not Recovered/Not Resolved]
  - Colostomy [Unknown]
  - Headache [Unknown]

NARRATIVE: CASE EVENT DATE: 2014
